FAERS Safety Report 24127526 (Version 1)
Quarter: 2024Q3

REPORT INFORMATION
  Report Type: Spontaneous
  Country: US (occurrence: None)
  Receive Date: 20240722
  Receipt Date: 20240722
  Transmission Date: 20241017
  Serious: Yes (Disabling, Other)
  Sender: Public
  Company Number: None

PATIENT
  Age: 76 Year
  Sex: Male
  Weight: 61.2 kg

DRUGS (1)
  1. DESOXYN [Suspect]
     Active Substance: METHAMPHETAMINE HYDROCHLORIDE

REACTIONS (4)
  - Gastrointestinal disorder [None]
  - Vomiting [None]
  - Fall [None]
  - Injury [None]

NARRATIVE: CASE EVENT DATE: 20240312
